FAERS Safety Report 21508455 (Version 1)
Quarter: 2022Q4

REPORT INFORMATION
  Report Type: Spontaneous
  Country: US (occurrence: None)
  Receive Date: 20221026
  Receipt Date: 20221026
  Transmission Date: 20230112
  Serious: Yes (Hospitalization)
  Sender: FDA-Public Use
  Company Number: None

PATIENT
  Age: 71 Year
  Sex: Female
  Weight: 97.52 kg

DRUGS (25)
  1. CAPECITABINE [Suspect]
     Active Substance: CAPECITABINE
     Indication: Colon cancer
     Dosage: FREQUENCY : TWICE A DAY;?
     Route: 048
  2. BREO ELLIPTA [Concomitant]
  3. CLOTRIMAZOLE [Concomitant]
  4. CRESTOR [Concomitant]
  5. COVID-19 MRNA VACC [Concomitant]
  6. CYCLOBENZAPRINE [Concomitant]
  7. DULCOLAX [Concomitant]
  8. FLUOXETINE [Concomitant]
  9. FLUZONE [Concomitant]
  10. FOSAMAX [Concomitant]
  11. FUROSEMIDE [Concomitant]
  12. MAXALT [Concomitant]
  13. MECLIZINE [Concomitant]
  14. MELOXICAM [Concomitant]
  15. METHOTREXATE [Concomitant]
  16. METOPROLOL [Concomitant]
  17. METRONIDAZOLE [Concomitant]
  18. NEOMYCIN [Concomitant]
  19. NITROFURANTOIN [Concomitant]
  20. PENTAZOCINE-NALOXONE [Concomitant]
  21. PERCOCET [Concomitant]
  22. POLYETHYLENE GLYCOL 3350 [Concomitant]
     Active Substance: POLYETHYLENE GLYCOL 3350
  23. RESTORIL [Concomitant]
  24. VICODIN [Concomitant]
  25. XANAX [Concomitant]

REACTIONS (5)
  - Fall [None]
  - Pelvic fracture [None]
  - Infection [None]
  - Therapy interrupted [None]
  - Metastases to pelvis [None]
